FAERS Safety Report 23570261 (Version 1)
Quarter: 2024Q1

REPORT INFORMATION
  Report Type: Spontaneous
  Country: US (occurrence: None)
  Receive Date: 20240226
  Receipt Date: 20240226
  Transmission Date: 20240410
  Serious: Yes (Hospitalization)
  Sender: FDA-Public Use
  Company Number: None

PATIENT
  Age: 58 Year
  Sex: Male
  Weight: 81 kg

DRUGS (1)
  1. PANZYGA [Suspect]
     Active Substance: HUMAN IMMUNOGLOBULIN G
     Indication: Polymyositis
     Dosage: OTHER FREQUENCY : EVERY 8 WEEKS;?
     Route: 042
     Dates: start: 20240222, end: 20240222

REACTIONS (8)
  - Infusion related reaction [None]
  - Heart rate increased [None]
  - Blood pressure increased [None]
  - Tremor [None]
  - Muscular weakness [None]
  - Dysstasia [None]
  - Cardiac arrest [None]
  - Atrioventricular block [None]

NARRATIVE: CASE EVENT DATE: 20240222
